FAERS Safety Report 6367294-7 (Version None)
Quarter: 2009Q3

REPORT INFORMATION
  Report Type: 
  Country: None (occurrence: None)
  Receive Date: 20090921
  Receipt Date: 20090911
  Transmission Date: 20100115
  Serious: Yes (Hospitalization)
  Sender: FDA-Public Use
  Company Number: JP-BRISTOL-MYERS SQUIBB COMPANY-14773162

PATIENT
  Age: 87 Year
  Sex: Female

DRUGS (6)
  1. CARBIDOPA + LEVODOPA [Suspect]
     Route: 048
     Dates: start: 20090830, end: 20090902
  2. VESICARE [Suspect]
     Dosage: FORM: TABLET 5MG/DAILY FROM JUL-2009
     Route: 048
     Dates: start: 20070701
  3. WARFARIN SODIUM [Concomitant]
     Dates: start: 19991101
  4. SYMMETREL [Concomitant]
     Dates: start: 20080527, end: 20090829
  5. PANALDINE [Concomitant]
     Dates: start: 19991101
  6. ARTANE [Concomitant]
     Dates: start: 20080527, end: 20090829

REACTIONS (1)
  - ALTERED STATE OF CONSCIOUSNESS [None]
